FAERS Safety Report 5989692-3 (Version None)
Quarter: 2008Q4

REPORT INFORMATION
  Report Type: 
  Country: None (occurrence: None)
  Receive Date: 20081210
  Receipt Date: 20081204
  Transmission Date: 20090506
  Serious: Yes (Hospitalization)
  Sender: FDA-Public Use
  Company Number: US-ROXANE LABORATORIES, INC.-2008-RO-00357RO

PATIENT
  Age: 46 Year
  Sex: Male

DRUGS (3)
  1. PREDNISONE TAB [Suspect]
     Indication: DYSPNOEA
     Dosage: 40MG
  2. PREDNISONE TAB [Suspect]
     Dosage: 20MG
  3. RED-CELL TRANSFUSION [Concomitant]

REACTIONS (6)
  - ACUTE CHEST SYNDROME [None]
  - APHASIA [None]
  - ATELECTASIS [None]
  - COGNITIVE DISORDER [None]
  - RESPIRATORY FAILURE [None]
  - VENOOCCLUSIVE DISEASE [None]
